FAERS Safety Report 5979631-3 (Version None)
Quarter: 2008Q4

REPORT INFORMATION
  Report Type: 
  Country: None (occurrence: None)
  Receive Date: 20081204
  Receipt Date: 20081126
  Transmission Date: 20090506
  Serious: Yes (Hospitalization)
  Sender: FDA-Public Use
  Company Number: US-GENENTECH-272416

PATIENT
  Sex: Female

DRUGS (4)
  1. BEVACIZUMAB [Suspect]
     Indication: BREAST CANCER METASTATIC
     Dosage: 15 MG/KG, UNK
     Route: 042
     Dates: start: 20070814
  2. IXABEPILONE [Suspect]
     Indication: BREAST CANCER METASTATIC
     Dosage: 25 MG/M2, UNK
     Route: 042
     Dates: start: 20071016
  3. FENTANYL TRANSDERMAL SYSTEM [Concomitant]
     Indication: DRUG USE FOR UNKNOWN INDICATION
     Dosage: UNK
     Dates: start: 20070821
  4. ATENOLOL [Concomitant]
     Indication: DRUG USE FOR UNKNOWN INDICATION
     Dosage: UNK
     Dates: start: 20080108, end: 20080303

REACTIONS (2)
  - PAIN IN EXTREMITY [None]
  - PYREXIA [None]
